FAERS Safety Report 7638457-5 (Version None)
Quarter: 2011Q3

REPORT INFORMATION
  Report Type: 
  Country: None (occurrence: None)
  Receive Date: 20110727
  Receipt Date: 20110725
  Transmission Date: 20111222
  Serious: Yes (Life-Threatening, Other)
  Sender: FDA-Public Use
  Company Number: US-ROXANE LABORATORIES, INC.-2011-RO-01059RO

PATIENT
  Sex: Male

DRUGS (1)
  1. PREDNISONE TAB [Suspect]

REACTIONS (5)
  - CARDIAC ARREST [None]
  - COMA [None]
  - BLOOD GLUCOSE INCREASED [None]
  - DYSPNOEA [None]
  - LUNG DISORDER [None]
